FAERS Safety Report 9344596 (Version 1)
Quarter: 2013Q2

REPORT INFORMATION
  Report Type: Spontaneous
  Country: US (occurrence: None)
  Receive Date: 20130611
  Receipt Date: 20130611
  Transmission Date: 20140414
  Serious: Yes (Hospitalization)
  Sender: FDA-Public Use
  Company Number: None

PATIENT
  Age: 62 Year
  Sex: Male
  Weight: 93.9 kg

DRUGS (1)
  1. WARFARIN [Suspect]
     Indication: HEART VALVE REPLACEMENT
     Route: 048
     Dates: start: 20130508, end: 20130515

REACTIONS (6)
  - International normalised ratio increased [None]
  - Fluid retention [None]
  - Haemoglobin decreased [None]
  - Haematocrit decreased [None]
  - Gastric haemorrhage [None]
  - Hepatic cirrhosis [None]
